FAERS Safety Report 12755531 (Version 2)
Quarter: 2019Q2

REPORT INFORMATION
  Report Type: Spontaneous
  Country: DK (occurrence: DK)
  Receive Date: 20160916
  Receipt Date: 20190521
  Transmission Date: 20190711
  Serious: Yes (Life-Threatening, Hospitalization, Disabling)
  Sender: FDA-Public Use
  Company Number: DK-JNJFOC-20160914426

PATIENT
  Age: 58 Year
  Sex: Male
  Weight: 82 kg

DRUGS (2)
  1. METOPROLOL SUCCINATE. [Concomitant]
     Active Substance: METOPROLOL SUCCINATE
     Indication: HEART RATE IRREGULAR
     Route: 065
     Dates: start: 20100819
  2. XARELTO [Suspect]
     Active Substance: RIVAROXABAN
     Indication: ATRIAL FIBRILLATION
     Route: 048
     Dates: start: 20160202, end: 20160405

REACTIONS (12)
  - Thalamus haemorrhage [Recovered/Resolved with Sequelae]
  - Aphasia [Not Recovered/Not Resolved]
  - Gait inability [Recovering/Resolving]
  - Brain injury [Not Recovered/Not Resolved]
  - Hemiparesis [Not Recovered/Not Resolved]
  - Cerebrovascular accident [Recovered/Resolved with Sequelae]
  - Memory impairment [Not Recovered/Not Resolved]
  - Drooling [Unknown]
  - Fall [Unknown]
  - Dyslexia [Not Recovered/Not Resolved]
  - Thrombolysis [Unknown]
  - Dysuria [Not Recovered/Not Resolved]

NARRATIVE: CASE EVENT DATE: 20160405
